FAERS Safety Report 7026207-5 (Version None)
Quarter: 2010Q4

REPORT INFORMATION
  Report Type: 
  Country: None (occurrence: None)
  Receive Date: 20101004
  Receipt Date: 20100929
  Transmission Date: 20110411
  Serious: Yes (Life-Threatening, Hospitalization, Other)
  Sender: FDA-Public Use
  Company Number: US-ELI_LILLY_AND_COMPANY-US201009005206

PATIENT
  Sex: Male
  Weight: 109 kg

DRUGS (26)
  1. PRASUGREL HYDROCHLORIDE [Suspect]
     Indication: ACUTE CORONARY SYNDROME
     Dosage: 10 MG, DAILY (1/D)
  2. ASPIRIN [Concomitant]
     Dosage: 325 MG, UNK
     Dates: start: 20100913
  3. ASPIRIN [Concomitant]
     Dosage: 325 MG, DAILY (1/D)
  4. LASIX [Concomitant]
     Indication: HYPERTENSION
     Dosage: 80 MG, 2/D
     Route: 048
  5. CLOPIDOGREL [Concomitant]
     Dosage: 300 MG, UNK
     Dates: start: 20100913
  6. CLOPIDOGREL [Concomitant]
     Dosage: 75 MG, DAILY (1/D)
     Dates: start: 20100914
  7. PRASUGREL [Concomitant]
     Dosage: 10 MG, DAILY (1/D)
     Dates: start: 20100916
  8. METFORMIN HCL [Concomitant]
     Indication: TYPE 2 DIABETES MELLITUS
     Dosage: 2000 MG, 2/D
     Route: 048
     Dates: start: 20050101, end: 20100913
  9. METFORMIN HCL [Concomitant]
     Dosage: 2000 MG, 2/D
     Route: 048
     Dates: start: 20100917
  10. NEXIUM [Concomitant]
     Indication: GASTROOESOPHAGEAL REFLUX DISEASE
     Dosage: 80 MG, 2/D
     Route: 048
     Dates: end: 20100912
  11. NEXIUM [Concomitant]
     Dosage: 80 MG, 2/D
     Route: 048
     Dates: start: 20100915
  12. LISINOPRIL [Concomitant]
     Indication: HYPERTENSION
     Dosage: 80 MG, 2/D
     Route: 048
  13. METOPROLOL TARTRATE [Concomitant]
     Indication: HYPERTENSION
     Dosage: 200 MG, 2/D
     Route: 048
  14. NIFEDIPINE [Concomitant]
     Indication: HYPERTENSION
     Dosage: 90 MG, DAILY (1/D)
     Route: 048
  15. GABAPENTIN [Concomitant]
     Indication: ANALGESIC THERAPY
     Dosage: 900 MG, 3/D
     Route: 048
  16. POTASSIUM CHLORIDE [Concomitant]
     Indication: MINERAL SUPPLEMENTATION
     Dosage: 20 D/F, DAILY (1/D)
     Route: 048
  17. WELLBUTRIN XL [Concomitant]
     Indication: DEPRESSION
     Dosage: 300 MG, 2/D
     Route: 048
  18. LEXAPRO [Concomitant]
     Indication: DEPRESSION
     Dosage: 20 MG, DAILY (1/D)
     Route: 048
  19. KLONOPIN [Concomitant]
     Indication: DEPRESSION
     Dosage: 2 MG, 2/D
     Route: 048
  20. SIMVASTATIN [Concomitant]
     Indication: HYPERLIPIDAEMIA
     Dosage: 40 MG, DAILY (1/D)
     Route: 048
     Dates: end: 20100916
  21. AMBIEN [Concomitant]
     Indication: INSOMNIA
     Dosage: 12.5 MG, DAILY (1/D)
     Route: 048
     Dates: end: 20100913
  22. AMBIEN [Concomitant]
     Dosage: 10 MG, DAILY (1/D)
     Route: 048
     Dates: start: 20100913, end: 20100914
  23. AMBIEN [Concomitant]
     Dosage: 12.5 MG, DAILY (1/D)
     Route: 048
     Dates: start: 20100915
  24. NOVOLOG MIX 70/30 [Concomitant]
     Indication: DIABETES MELLITUS
     Dosage: 63 D/F, OTHER
     Route: 058
     Dates: start: 20050101
  25. PROTONIX [Concomitant]
     Indication: GASTROOESOPHAGEAL REFLUX DISEASE
     Dosage: 80 MG, 2/D
     Route: 048
     Dates: start: 20100913, end: 20100915
  26. ZOCOR [Concomitant]
     Indication: HYPERLIPIDAEMIA
     Dosage: 80 MG, DAILY (1/D)
     Route: 048
     Dates: start: 20100916, end: 20100919

REACTIONS (2)
  - ACUTE MYOCARDIAL INFARCTION [None]
  - CORONARY ARTERY RESTENOSIS [None]
